FAERS Safety Report 24963147 (Version 1)
Quarter: 2025Q1

REPORT INFORMATION
  Report Type: Report from Study
  Country: GB (occurrence: GB)
  Receive Date: 20250213
  Receipt Date: 20250213
  Transmission Date: 20250408
  Serious: Yes (Hospitalization)
  Sender: ROCHE
  Company Number: GB-ROCHE-3283352

PATIENT
  Age: 72 Year
  Sex: Male

DRUGS (1)
  1. RISDIPLAM [Suspect]
     Active Substance: RISDIPLAM
     Indication: Product used for unknown indication
     Dosage: FREQUENCY 1
     Route: 065
     Dates: start: 202206

REACTIONS (5)
  - Cystitis [Unknown]
  - Malaise [Recovering/Resolving]
  - Infection [Recovering/Resolving]
  - Gastrointestinal disorder [Recovering/Resolving]
  - Infection [Unknown]
